FAERS Safety Report 4511986-9 (Version None)
Quarter: 2004Q4

REPORT INFORMATION
  Report Type: 
  Country: None (occurrence: None)
  Receive Date: 20041129
  Receipt Date: 20040302
  Transmission Date: 20050328
  Serious: No
  Sender: FDA-Public Use
  Company Number: US-BRISTOL-MYERS SQUIBB COMPANY-12521613

PATIENT
  Age: 25 Year
  Sex: Male

DRUGS (2)
  1. SUSTIVA [Suspect]
     Indication: HIV INFECTION
  2. PROPYLTHIOURACIL [Concomitant]
     Route: 048

REACTIONS (4)
  - FAT REDISTRIBUTION [None]
  - HYPERTHYROIDISM [None]
  - RASH MACULAR [None]
  - URTICARIA [None]
